FAERS Safety Report 25242502 (Version 3)
Quarter: 2025Q4

REPORT INFORMATION
  Report Type: Spontaneous
  Country: US (occurrence: US)
  Receive Date: 20250427
  Receipt Date: 20251015
  Transmission Date: 20260117
  Serious: No
  Sender: BRISTOL-MYERS SQUIBB COMPANY
  Company Number: US-BRISTOL-MYERS SQUIBB COMPANY-2025-061399

PATIENT
  Age: 54 Year
  Sex: Female

DRUGS (2)
  1. OPDIVO [Suspect]
     Active Substance: NIVOLUMAB
     Indication: Ovarian epithelial cancer stage IV
     Dosage: 4-100MG
     Dates: end: 20250424
  2. OPDIVO [Suspect]
     Active Substance: NIVOLUMAB
     Dates: start: 20241125, end: 20250407

REACTIONS (1)
  - Off label use [Unknown]
